FAERS Safety Report 5944731-0 (Version None)
Quarter: 2008Q4

REPORT INFORMATION
  Report Type: 
  Country: None (occurrence: None)
  Receive Date: 20081107
  Receipt Date: 20081030
  Transmission Date: 20090506
  Serious: Yes (Hospitalization, Other)
  Sender: FDA-Public Use
  Company Number: US-AMGEN-QUU316620

PATIENT
  Sex: Female

DRUGS (1)
  1. ENBREL [Suspect]
     Indication: PSORIATIC ARTHROPATHY
     Route: 058
     Dates: start: 20011201

REACTIONS (6)
  - ARTHRALGIA [None]
  - CHOLECYSTECTOMY [None]
  - HAEMORRHAGE [None]
  - INCISIONAL HERNIA [None]
  - INJECTION SITE HAEMATOMA [None]
  - SURGERY [None]
